FAERS Safety Report 4807124-5 (Version None)
Quarter: 2005Q4

REPORT INFORMATION
  Report Type: 
  Country: None (occurrence: None)
  Receive Date: 20051024
  Receipt Date: 20051014
  Transmission Date: 20060501
  Serious: Yes (Hospitalization)
  Sender: FDA-Public Use
  Company Number: FR-GLAXOSMITHKLINE-B0397875A

PATIENT
  Age: 69 Year
  Sex: Male

DRUGS (6)
  1. ARIXTRA [Suspect]
     Dosage: 2.5MG PER DAY
     Route: 058
     Dates: start: 20040922, end: 20041008
  2. APRANAX [Suspect]
     Indication: DRUG USE FOR UNKNOWN INDICATION
     Dosage: 1100MG PER DAY
     Route: 048
     Dates: start: 20040922, end: 20041008
  3. DOLIPRANE [Concomitant]
  4. DETENSIEL [Concomitant]
     Route: 048
  5. ZESTRIL [Concomitant]
     Route: 048
  6. TOPALGIC ( FRANCE ) [Concomitant]
     Route: 048

REACTIONS (1)
  - TRAUMATIC HAEMATOMA [None]
